FAERS Safety Report 17563904 (Version 1)
Quarter: 2020Q1

REPORT INFORMATION
  Report Type: Report from Study
  Country: None (occurrence: US)
  Receive Date: 20200320
  Receipt Date: 20200320
  Transmission Date: 20200409
  Serious: Yes (Other)
  Sender: FDA-Public Use
  Company Number: US-ABBVIE-20K-163-3327593-00

PATIENT
  Sex: Female

DRUGS (1)
  1. HUMIRA [Suspect]
     Active Substance: ADALIMUMAB
     Indication: RHEUMATOID ARTHRITIS
     Route: 058
     Dates: start: 20191219

REACTIONS (6)
  - Lymphadenitis [Unknown]
  - Therapeutic response shortened [Unknown]
  - Psoriasis [Recovering/Resolving]
  - Rheumatoid arthritis [Unknown]
  - Rash [Recovering/Resolving]
  - Systemic lupus erythematosus [Recovering/Resolving]
